FAERS Safety Report 12752069 (Version 1)
Quarter: 2016Q3

REPORT INFORMATION
  Report Type: Spontaneous
  Country: US (occurrence: US)
  Receive Date: 20160915
  Receipt Date: 20160915
  Transmission Date: 20161109
  Serious: Yes (Death, Hospitalization)
  Sender: FDA-Public Use
  Company Number: US-ALLERGAN-1668719US

PATIENT
  Age: 79 Year
  Sex: Male
  Weight: 104.1 kg

DRUGS (3)
  1. NORCO [Suspect]
     Active Substance: ACETAMINOPHEN\HYDROCODONE BITARTRATE
     Indication: PAIN
     Dosage: 10 MG, Q4HR
     Route: 048
     Dates: start: 20160405
  2. NIVOLUMAB [Suspect]
     Active Substance: NIVOLUMAB
     Indication: DIFFUSE LARGE B-CELL LYMPHOMA
     Dosage: 300 MG, BID
     Route: 048
     Dates: start: 20160414, end: 20160502
  3. NIVOLUMAB [Suspect]
     Active Substance: NIVOLUMAB
     Dosage: 240 MG, Q WEEK
     Route: 042
     Dates: start: 20160414, end: 20160502

REACTIONS (12)
  - Nausea [Unknown]
  - Vomiting [Unknown]
  - Mental status changes [Unknown]
  - Hypercalcaemia [Recovered/Resolved]
  - Diffuse large B-cell lymphoma [Fatal]
  - Abdominal pain [Unknown]
  - Lactic acidosis [Not Recovered/Not Resolved]
  - Diarrhoea [Unknown]
  - Hallucination [Unknown]
  - Blood urine present [Unknown]
  - Encephalopathy [Not Recovered/Not Resolved]
  - Blood magnesium decreased [Recovered/Resolved]

NARRATIVE: CASE EVENT DATE: 20160501
